FAERS Safety Report 8332735-2 (Version None)
Quarter: 2012Q2

REPORT INFORMATION
  Report Type: 
  Country: None (occurrence: None)
  Receive Date: 20120503
  Receipt Date: 20120423
  Transmission Date: 20120825
  Serious: Yes (Hospitalization)
  Sender: FDA-Public Use
  Company Number: IE-US-EMD SERONO, INC.-7081423

PATIENT
  Sex: Female

DRUGS (3)
  1. SERC [Concomitant]
     Indication: DIZZINESS
     Route: 048
  2. REBIF [Suspect]
     Indication: RELAPSING-REMITTING MULTIPLE SCLEROSIS
     Route: 058
     Dates: start: 20070903, end: 20110930
  3. LEVOTHYROXINE SODIUM [Concomitant]
     Indication: PRODUCT USED FOR UNKNOWN INDICATION
     Dosage: 50/75 MG
     Route: 048

REACTIONS (6)
  - ARTHROPOD BITE [None]
  - RIGHT VENTRICULAR FAILURE [None]
  - CARDIOMEGALY [None]
  - PERICARDIAL EFFUSION [None]
  - PULMONARY HYPERTENSION [None]
  - TACHYCARDIA [None]
